FAERS Safety Report 21164136 (Version 1)
Quarter: 2022Q3

REPORT INFORMATION
  Report Type: Spontaneous
  Country: IT (occurrence: IT)
  Receive Date: 20220803
  Receipt Date: 20220803
  Transmission Date: 20221027
  Serious: Yes (Other)
  Sender: FDA-Public Use
  Company Number: None

PATIENT
  Age: 34 Year
  Sex: Male
  Weight: 69 kg

DRUGS (2)
  1. ALLOPURINOL [Suspect]
     Active Substance: ALLOPURINOL
     Indication: Hyperuricaemia
     Dosage: UNIT DOSE: 100 MG/KG, FREQUENCY : 1 DAYS
     Route: 048
     Dates: start: 20220101
  2. LANSOPRAZOLE [Concomitant]
     Active Substance: LANSOPRAZOLE
     Indication: Gastrooesophageal reflux disease
     Dosage: UNIT DOSE: 15 MG, FREQUENCY : 1 DAYS
     Route: 048
     Dates: start: 20190101

REACTIONS (4)
  - Hepatitis [Not Recovered/Not Resolved]
  - Hyperuricaemia [Not Recovered/Not Resolved]
  - Irritable bowel syndrome [Not Recovered/Not Resolved]
  - Gilbert^s syndrome [Not Recovered/Not Resolved]

NARRATIVE: CASE EVENT DATE: 20220101
